FAERS Safety Report 12525741 (Version 2)
Quarter: 2016Q3

REPORT INFORMATION
  Report Type: Spontaneous
  Country: CZ (occurrence: CZ)
  Receive Date: 20160705
  Receipt Date: 20160712
  Transmission Date: 20161109
  Serious: Yes (Other)
  Sender: FDA-Public Use
  Company Number: CZ-AMGEN-CZESP2016085299

PATIENT
  Age: 71 Year
  Sex: Male

DRUGS (12)
  1. VECTIBIX [Suspect]
     Active Substance: PANITUMUMAB
     Indication: COLORECTAL CANCER
     Dosage: UNK
     Route: 065
     Dates: start: 201502
  2. FOLINIC ACID [Concomitant]
     Active Substance: LEUCOVORIN
     Indication: DISEASE PROGRESSION
  3. 5-FLUOROURACIL [Concomitant]
     Active Substance: FLUOROURACIL
     Indication: COLORECTAL CANCER
     Dosage: UNK
  4. IRINOTECAN [Concomitant]
     Active Substance: IRINOTECAN
     Indication: DISEASE PROGRESSION
  5. VECTIBIX [Suspect]
     Active Substance: PANITUMUMAB
     Indication: METASTASES TO LUNG
  6. FOLINIC ACID [Concomitant]
     Active Substance: LEUCOVORIN
     Indication: METASTASES TO LUNG
  7. IRINOTECAN [Concomitant]
     Active Substance: IRINOTECAN
     Indication: METASTASES TO LUNG
  8. IRINOTECAN [Concomitant]
     Active Substance: IRINOTECAN
     Indication: COLORECTAL CANCER
     Dosage: UNK
     Dates: start: 201502
  9. VECTIBIX [Suspect]
     Active Substance: PANITUMUMAB
     Indication: DISEASE PROGRESSION
  10. FOLINIC ACID [Concomitant]
     Active Substance: LEUCOVORIN
     Indication: COLORECTAL CANCER
     Dosage: UNK
  11. 5-FLUOROURACIL [Concomitant]
     Active Substance: FLUOROURACIL
     Indication: DISEASE PROGRESSION
  12. 5-FLUOROURACIL [Concomitant]
     Active Substance: FLUOROURACIL
     Indication: METASTASES TO LUNG

REACTIONS (3)
  - Rash pustular [Unknown]
  - Malignant neoplasm progression [Unknown]
  - Rash [Unknown]
